FAERS Safety Report 7874705-4 (Version None)
Quarter: 2011Q4

REPORT INFORMATION
  Report Type: 
  Country: None (occurrence: None)
  Receive Date: 20111031
  Receipt Date: 20111019
  Transmission Date: 20120403
  Serious: Yes (Hospitalization)
  Sender: FDA-Public Use
  Company Number: FR-JNJFOC-20111009204

PATIENT
  Age: 14 Year
  Sex: Male

DRUGS (4)
  1. REMICADE [Suspect]
     Route: 042
  2. REMICADE [Suspect]
     Route: 042
     Dates: start: 20110412
  3. REMICADE [Suspect]
     Indication: COLITIS ULCERATIVE
     Route: 042
  4. REMICADE [Suspect]
     Indication: ENTEROCOLITIS HAEMORRHAGIC
     Route: 042
     Dates: start: 20110412

REACTIONS (2)
  - ANAPHYLACTOID SHOCK [None]
  - INFUSION RELATED REACTION [None]
